FAERS Safety Report 9365162 (Version 1)
Quarter: 2013Q2

REPORT INFORMATION
  Report Type: Spontaneous
  Country: CA (occurrence: CA)
  Receive Date: 20130624
  Receipt Date: 20130624
  Transmission Date: 20140414
  Serious: Yes (Other)
  Sender: FDA-Public Use
  Company Number: CHPA2013CA010130

PATIENT
  Age: 71 Year
  Sex: Female

DRUGS (3)
  1. VOLTAREN EMULGEL [Suspect]
     Indication: TENDONITIS
     Dosage: 2 CM, 1-2 TIMES A DAY
     Route: 061
     Dates: start: 20130617, end: 20130619
  2. VENTOLIN [Suspect]
     Dosage: UNK, UNK
  3. TYLENOL ARTHRITIS [Suspect]
     Dosage: UNK, UNK
     Dates: start: 20130617

REACTIONS (3)
  - Haemoptysis [Not Recovered/Not Resolved]
  - Chest discomfort [Not Recovered/Not Resolved]
  - Underdose [Unknown]
